FAERS Safety Report 6453382-3 (Version None)
Quarter: 2009Q4

REPORT INFORMATION
  Report Type: 
  Country: None (occurrence: None)
  Receive Date: 20091124
  Receipt Date: 20091120
  Transmission Date: 20100525
  Serious: Yes (Death, Life-Threatening, Hospitalization)
  Sender: FDA-Public Use
  Company Number: RU-ROCHE-665280

PATIENT
  Sex: Female
  Weight: 56 kg

DRUGS (5)
  1. CAPECITABINE [Suspect]
     Dosage: DAYS 1-14 OF EACH 3-WEEK CYCLE , LAST DOSE PRIOR TO SAE: 15 OCTOBER 2009
     Route: 048
     Dates: start: 20090528, end: 20091015
  2. BEVACIZUMAB [Suspect]
     Dosage: ROUTE: IV INFUSION, FORM: INFUSION SOLUTION; LAST DOSE PRIOR TO SAE: 01 OCT 2009
     Route: 042
     Dates: start: 20090528, end: 20091022
  3. TRASTUZUMAB [Suspect]
     Dosage: FORM: INFUSION SOLUTION, ROUTE: IV INFUSION, LAST DOSE PRIOR TO SAE: 01 OCT 2009
     Route: 042
     Dates: start: 20090528, end: 20091022
  4. AMOXICILLIN AND CLAVULANATE POTASSIUM [Concomitant]
     Dosage: DRUG REPORTED: AMOXYCLAV
     Dates: start: 20091022
  5. SUMAMED [Concomitant]
     Dates: start: 20091022

REACTIONS (3)
  - CARDIAC FAILURE [None]
  - PNEUMONIA [None]
  - RENAL FAILURE [None]
